FAERS Safety Report 8502213-6 (Version None)
Quarter: 2012Q2

REPORT INFORMATION
  Report Type: 
  Country: None (occurrence: None)
  Receive Date: 20120405
  Receipt Date: 20101129
  Transmission Date: 20120825
  Serious: Yes (Other)
  Sender: FDA-Public Use
  Company Number: PHHY2010US60820

PATIENT
  Age: 65 Year
  Sex: Female
  Weight: 72 kg

DRUGS (3)
  1. RECLAST [Suspect]
     Indication: OSTEOPOROSIS
     Dosage: 5 MG YEARLY, INTRAVENOUS
     Route: 042
     Dates: start: 20100825
  2. VITAMIN D [Concomitant]
  3. PRAVASTAITN (PRAVASTATIN) [Concomitant]

REACTIONS (2)
  - IRITIS [None]
  - UVEITIS [None]
